FAERS Safety Report 9423534 (Version 1)
Quarter: 2013Q3

REPORT INFORMATION
  Report Type: Spontaneous
  Country: US (occurrence: US)
  Receive Date: 20130726
  Receipt Date: 20130726
  Transmission Date: 20140515
  Serious: No
  Sender: FDA-Public Use
  Company Number: US-BAXTER-2012BAX015985

PATIENT
  Sex: Female

DRUGS (1)
  1. PENICILLIN G POTASSIUM INJECTION, USP [Suspect]
     Indication: INFECTION PROPHYLAXIS
     Dosage: 3 MILLION UNITS IN 15 ML.
     Route: 042

REACTIONS (1)
  - Infusion site irritation [Unknown]
